FAERS Safety Report 10216358 (Version 1)
Quarter: 2014Q2

REPORT INFORMATION
  Report Type: Spontaneous
  Country: US (occurrence: None)
  Receive Date: 20140602
  Receipt Date: 20140602
  Transmission Date: 20141212
  Serious: Yes (Other)
  Sender: FDA-Public Use
  Company Number: 2014P1004477

PATIENT
  Sex: 0

DRUGS (2)
  1. BLOXIVERZ [Suspect]
     Dates: start: 2014
  2. GLYCOPYRROLATE [Suspect]
     Dates: start: 2014

REACTIONS (3)
  - Surgery [None]
  - Cardiac disorder [None]
  - Disease complication [None]
